FAERS Safety Report 5886243-9 (Version None)
Quarter: 2008Q3

REPORT INFORMATION
  Report Type: 
  Country: None (occurrence: None)
  Receive Date: 20080917
  Receipt Date: 20080912
  Transmission Date: 20090109
  Serious: Yes (Other)
  Sender: FDA-Public Use
  Company Number: DE-AVENTIS-200812216DE

PATIENT
  Age: 71 Year
  Sex: Male

DRUGS (1)
  1. NASACORT [Suspect]
     Dosage: DOSE: ONE SPRAY
     Route: 045
     Dates: start: 20040101

REACTIONS (2)
  - OSTEOPOROSIS [None]
  - SPINAL FRACTURE [None]
